FAERS Safety Report 16682855 (Version 1)
Quarter: 2019Q3

REPORT INFORMATION
  Report Type: Spontaneous
  Country: US (occurrence: US)
  Receive Date: 20190807
  Receipt Date: 20190807
  Transmission Date: 20191004
  Serious: No
  Sender: FDA-Public Use
  Company Number: None

PATIENT
  Age: 70 Year
  Sex: Female
  Weight: 74.25 kg

DRUGS (1)
  1. ELIQUIS [Suspect]
     Active Substance: APIXABAN
     Indication: DEEP VEIN THROMBOSIS
     Dosage: ?          QUANTITY:1 TABLET(S);?          THERAPY ONGOING: Y?
     Route: 048
     Dates: start: 20181205, end: 20190807

REACTIONS (6)
  - Anal incontinence [None]
  - Arthralgia [None]
  - Urinary incontinence [None]
  - Groin pain [None]
  - Muscular weakness [None]
  - Confusional state [None]

NARRATIVE: CASE EVENT DATE: 20190115
